FAERS Safety Report 21520117 (Version 1)
Quarter: 2022Q4

REPORT INFORMATION
  Report Type: Spontaneous
  Country: CA (occurrence: CA)
  Receive Date: 20221028
  Receipt Date: 20221028
  Transmission Date: 20230113
  Serious: Yes (Hospitalization)
  Sender: FDA-Public Use
  Company Number: CA-SERVIER-S22010668

PATIENT

DRUGS (2)
  1. ONCASPAR [Suspect]
     Active Substance: PEGASPARGASE
     Indication: Acute lymphocytic leukaemia
     Dosage: 2240 UNK
     Route: 065
  2. ONCASPAR [Suspect]
     Active Substance: PEGASPARGASE
     Dosage: 2240 U/M2
     Route: 065
     Dates: start: 20221004

REACTIONS (2)
  - Hypersensitivity [Unknown]
  - Type II hypersensitivity [Unknown]

NARRATIVE: CASE EVENT DATE: 20221004
